FAERS Safety Report 7403836-8 (Version None)
Quarter: 2011Q2

REPORT INFORMATION
  Report Type: 
  Country: None (occurrence: None)
  Receive Date: 20110408
  Receipt Date: 20110329
  Transmission Date: 20111010
  Serious: Yes (Other)
  Sender: FDA-Public Use
  Company Number: PHHY2011US22912

PATIENT
  Sex: Female

DRUGS (6)
  1. LASIX [Concomitant]
     Dosage: UNK
     Route: 048
  2. COUMADIN [Concomitant]
     Dosage: UNK
     Route: 048
  3. COREG [Concomitant]
     Dosage: UNK
     Route: 048
  4. RECLAST [Suspect]
  5. POTASSIUM CHLORIDE [Concomitant]
     Dosage: UNK
     Route: 048
  6. ALDACTONE [Concomitant]

REACTIONS (2)
  - DYSPNOEA [None]
  - PLEURAL EFFUSION [None]
